FAERS Safety Report 8735489 (Version 2)
Quarter: 2012Q4

REPORT INFORMATION
  Report Type: 
  Country: CA (occurrence: CA)
  Receive Date: 20120822
  Receipt Date: 20120828
  Transmission Date: 20130627
  Serious: Yes (Hospitalization, Other)
  Sender: FDA-Public Use
  Company Number: PHHY2012CA071280

PATIENT
  Sex: Male

DRUGS (1)
  1. CLOZARIL [Suspect]
     Indication: SCHIZOPHRENIA
     Dosage: 600 mg, Per os
     Route: 048
     Dates: start: 20091105

REACTIONS (3)
  - Schwannoma [Recovered/Resolved]
  - Fall [Unknown]
  - Muscular weakness [Unknown]
